FAERS Safety Report 4589179-9 (Version None)
Quarter: 2005Q1

REPORT INFORMATION
  Report Type: 
  Country: None (occurrence: None)
  Receive Date: 20050216
  Receipt Date: 20050216
  Transmission Date: 20050727
  Serious: Yes (Hospitalization)
  Sender: FDA-Public Use
  Company Number: None

PATIENT
  Age: 81 Year
  Sex: Female
  Weight: 101 kg

DRUGS (4)
  1. FARESTON [Suspect]
     Indication: BREAST CANCER
     Dosage: 60MG  QDAY  PO
     Route: 048
     Dates: start: 20010830, end: 20050116
  2. METFORMIN [Concomitant]
  3. K-DUR 10 [Concomitant]
  4. LASIX [Concomitant]

REACTIONS (1)
  - PULMONARY EMBOLISM [None]
